FAERS Safety Report 24745454 (Version 3)
Quarter: 2025Q1

REPORT INFORMATION
  Report Type: Spontaneous
  Country: JP (occurrence: JP)
  Receive Date: 20241217
  Receipt Date: 20250130
  Transmission Date: 20250409
  Serious: Yes (Hospitalization, Other)
  Sender: GLAXOSMITHKLINE
  Company Number: JP-GSK-JP2024JPN156202

PATIENT

DRUGS (16)
  1. LAMICTAL [Suspect]
     Active Substance: LAMOTRIGINE
     Indication: Schizophrenia
     Dosage: 25 MG, 1D
     Route: 048
     Dates: start: 20231220
  2. XYZAL [Concomitant]
     Active Substance: LEVOCETIRIZINE DIHYDROCHLORIDE
     Indication: Pruritus
     Dosage: 5 MG, BID
     Route: 048
     Dates: start: 20230907
  3. VALSARTAN [Concomitant]
     Active Substance: VALSARTAN
     Indication: Hypertension
     Dosage: 80 MG, 1D
     Route: 048
     Dates: start: 20230906
  4. INDERAL [Concomitant]
     Active Substance: PROPRANOLOL HYDROCHLORIDE
     Indication: Neurosis
     Dosage: 10 MG, BID
     Route: 048
     Dates: start: 20230729
  5. DIETARY SUPPLEMENT\PROBIOTICS [Concomitant]
     Active Substance: DIETARY SUPPLEMENT\PROBIOTICS NOS
     Indication: Gastrointestinal disorder
     Dosage: 1 DF, TID
     Route: 048
     Dates: start: 20230907
  6. ABILIFY [Concomitant]
     Active Substance: ARIPIPRAZOLE
     Indication: Schizophrenia
     Dosage: 1 MG, 1D
     Route: 048
     Dates: start: 20230907
  7. BROMAZEPAM [Concomitant]
     Active Substance: BROMAZEPAM
     Indication: Schizophrenia
     Dosage: 1 DF, TID
     Route: 048
     Dates: start: 20230729
  8. GASTER [Concomitant]
     Active Substance: FAMOTIDINE
     Indication: Gastric mucosal lesion
     Dosage: 20 MG, 1D
     Route: 048
     Dates: start: 20230729
  9. DAYVIGO [Concomitant]
     Active Substance: LEMBOREXANT
     Indication: Insomnia
     Dosage: 10 MG, 1D
     Route: 048
     Dates: start: 20230729
  10. HERBALS [Concomitant]
     Active Substance: HERBALS
     Indication: Neurosis
     Dosage: 3 DF, 1D
     Route: 048
     Dates: start: 20230729
  11. AKINETON [Concomitant]
     Active Substance: BIPERIDEN HYDROCHLORIDE
     Indication: Parkinsonism
     Route: 048
     Dates: start: 20230907
  12. SEROQUEL [Concomitant]
     Active Substance: QUETIAPINE FUMARATE
     Indication: Schizophrenia
     Route: 048
     Dates: start: 20230729
  13. LOXOPROFEN SODIUM [Concomitant]
     Active Substance: LOXOPROFEN SODIUM
     Indication: Analgesic therapy
     Route: 048
     Dates: start: 20230907
  14. LOXOPROFEN SODIUM [Concomitant]
     Active Substance: LOXOPROFEN SODIUM
     Indication: Headache
  15. REBAMIPIDE [Concomitant]
     Active Substance: REBAMIPIDE
     Indication: Gastric mucosal lesion
     Route: 048
     Dates: start: 20230907
  16. REBAMIPIDE [Concomitant]
     Active Substance: REBAMIPIDE
     Indication: Headache

REACTIONS (23)
  - SJS-TEN overlap [Unknown]
  - Dermatitis exfoliative generalised [Unknown]
  - Purpura [Unknown]
  - Renal impairment [Unknown]
  - Blood pressure decreased [Unknown]
  - Suicidal ideation [Unknown]
  - Blister [Unknown]
  - Rash [Unknown]
  - Skin erosion [Recovering/Resolving]
  - Mouth ulceration [Unknown]
  - Psychotic disorder [Unknown]
  - Delusion [Unknown]
  - Pustule [Unknown]
  - Skin exfoliation [Unknown]
  - Ocular hyperaemia [Unknown]
  - Erythema of eyelid [Unknown]
  - Eye discharge [Unknown]
  - Eyelid erosion [Unknown]
  - Lip erosion [Unknown]
  - Oral mucosa erosion [Unknown]
  - Vulval disorder [Unknown]
  - Erythema [Unknown]
  - Product use in unapproved indication [Unknown]

NARRATIVE: CASE EVENT DATE: 20240114
